FAERS Safety Report 20174899 (Version 1)
Quarter: 2021Q4

REPORT INFORMATION
  Report Type: Spontaneous
  Country: US (occurrence: None)
  Receive Date: 20211209
  Receipt Date: 20211209
  Transmission Date: 20220303
  Serious: Yes (Hospitalization)
  Sender: FDA-Public Use
  Company Number: None

PATIENT
  Age: 40 Year
  Sex: Female
  Weight: 65.25 kg

DRUGS (1)
  1. REMDESIVIR [Suspect]
     Active Substance: REMDESIVIR
     Indication: COVID-19 pneumonia
     Dates: start: 20210907, end: 20210911

REACTIONS (6)
  - Deep vein thrombosis [None]
  - Heart rate decreased [None]
  - Blood pressure decreased [None]
  - Swelling [None]
  - Contusion [None]
  - Irritability [None]

NARRATIVE: CASE EVENT DATE: 20210907
